FAERS Safety Report 13561972 (Version 1)
Quarter: 2017Q2

REPORT INFORMATION
  Report Type: Report from Study
  Country: None (occurrence: IL)
  Receive Date: 20170518
  Receipt Date: 20170518
  Transmission Date: 20170830
  Serious: Yes (Other)
  Sender: FDA-Public Use
  Company Number: IL-ABBVIE-17K-082-1978568-00

PATIENT
  Age: 74 Year
  Sex: Female

DRUGS (1)
  1. DUODOPA [Suspect]
     Active Substance: CARBIDOPA\LEVODOPA
     Indication: PARKINSON^S DISEASE
     Dosage: CURRENT MORNING- 10ML, CURRENT PACE 2.1 ML/HOUR, CURRENT ED- 1 ML.
     Route: 050
     Dates: start: 20160703

REACTIONS (1)
  - Thermal burn [Unknown]

NARRATIVE: CASE EVENT DATE: 20170516
